FAERS Safety Report 13066670 (Version 1)
Quarter: 2016Q4

REPORT INFORMATION
  Report Type: Spontaneous
  Country: US (occurrence: US)
  Receive Date: 20161227
  Receipt Date: 20161227
  Transmission Date: 20170207
  Serious: No
  Sender: FDA-Public Use
  Company Number: US-009507513-1612USA012422

PATIENT
  Age: 27 Year
  Sex: Female
  Weight: 86.17 kg

DRUGS (1)
  1. NEXPLANON [Suspect]
     Active Substance: ETONOGESTREL
     Dosage: THE IMPLANT
     Route: 059
     Dates: end: 20161201

REACTIONS (2)
  - Menstruation delayed [Unknown]
  - Asthenia [Unknown]

NARRATIVE: CASE EVENT DATE: 20161201
